FAERS Safety Report 13038635 (Version 13)
Quarter: 2021Q2

REPORT INFORMATION
  Report Type: Report from Study
  Country: JP (occurrence: JP)
  Receive Date: 20161219
  Receipt Date: 20210517
  Transmission Date: 20210716
  Serious: Yes (Hospitalization, Disabling, Other)
  Sender: FDA-Public Use
  Company Number: JP-AEGERION PHARMACEUTICAL INC.-AEGR002872

PATIENT

DRUGS (32)
  1. METRELEPTIN SHIONOGI [Suspect]
     Active Substance: METRELEPTIN
     Indication: LIPOATROPHY
     Dosage: 2 MG, QD
     Route: 058
     Dates: start: 200301, end: 20130923
  2. LANTUS [Concomitant]
     Active Substance: INSULIN GLARGINE
     Indication: PRODUCT USED FOR UNKNOWN INDICATION
     Dosage: 6 IU, QD
     Dates: start: 20140512, end: 20160809
  3. PIOGLITAZONE                       /01460202/ [Concomitant]
     Active Substance: PIOGLITAZONE HYDROCHLORIDE
     Indication: PRODUCT USED FOR UNKNOWN INDICATION
     Dosage: 15 MG/DAY
     Route: 048
     Dates: start: 20160801, end: 20160811
  4. PIOGLITAZONE                       /01460202/ [Concomitant]
     Active Substance: PIOGLITAZONE HYDROCHLORIDE
     Dosage: 30 MG/DAY
     Dates: start: 20160812, end: 20201005
  5. METGLUCO [Concomitant]
     Active Substance: METFORMIN HYDROCHLORIDE
     Dosage: 500 MG, QD
     Route: 048
     Dates: start: 20180521, end: 20180722
  6. MIRCERA [Concomitant]
     Active Substance: METHOXY POLYETHYLENE GLYCOL-EPOETIN BETA
     Dosage: 50 MCG, QD
     Dates: start: 20181015
  7. NIFEDIPINE. [Concomitant]
     Active Substance: NIFEDIPINE
     Indication: PRODUCT USED FOR UNKNOWN INDICATION
     Dosage: 10 MG, QD
     Route: 048
     Dates: start: 20190121, end: 20200105
  8. VICTOZA [Concomitant]
     Active Substance: LIRAGLUTIDE
     Indication: PRODUCT USED FOR UNKNOWN INDICATION
     Dosage: 0.9 MG/DAY
     Dates: end: 20160724
  9. NOVORAPID [Concomitant]
     Active Substance: INSULIN ASPART
     Dosage: 14 IU/DAY
     Dates: start: 20160809, end: 20160809
  10. IRTRA [Concomitant]
     Active Substance: IRBESARTAN\TRICHLORMETHIAZIDE
     Indication: PRODUCT USED FOR UNKNOWN INDICATION
     Dosage: 1 DOSAGE FORM, QD
     Route: 048
     Dates: start: 20180423, end: 20200105
  11. METRELEPTIN SHIONOGI [Suspect]
     Active Substance: METRELEPTIN
     Dosage: 2 MG, QD
     Route: 058
     Dates: start: 20130924
  12. TANATRIL [Concomitant]
     Active Substance: IMIDAPRIL
     Indication: PRODUCT USED FOR UNKNOWN INDICATION
     Dosage: 5 MG, QD
     Route: 048
     Dates: start: 20150420, end: 20161023
  13. NOVORAPID [Concomitant]
     Active Substance: INSULIN ASPART
     Dosage: 8 IU/DAY
     Dates: start: 20160810, end: 20160810
  14. METGLUCO [Concomitant]
     Active Substance: METFORMIN HYDROCHLORIDE
     Indication: PRODUCT USED FOR UNKNOWN INDICATION
     Dosage: 750 MG/DAY
     Route: 048
     Dates: start: 20160804, end: 20160809
  15. VOGLIBOSE OD [Concomitant]
     Active Substance: VOGLIBOSE
     Indication: PRODUCT USED FOR UNKNOWN INDICATION
     Dosage: 0.9 MG/DAY
     Route: 048
     Dates: start: 20160809, end: 20170924
  16. FUROSEMIDE. [Concomitant]
     Active Substance: FUROSEMIDE
     Indication: PRODUCT USED FOR UNKNOWN INDICATION
     Dosage: 80 MG, QD
     Route: 048
     Dates: start: 20180423, end: 20180520
  17. FUROSEMIDE. [Concomitant]
     Active Substance: FUROSEMIDE
     Dosage: 60 MG, QD
     Route: 048
     Dates: start: 20180521, end: 20200105
  18. LANTUS XR [Concomitant]
     Active Substance: INSULIN GLARGINE
     Indication: PRODUCT USED FOR UNKNOWN INDICATION
     Dosage: 10 IU, QD
     Dates: start: 20180521, end: 20180617
  19. LANTUS XR [Concomitant]
     Active Substance: INSULIN GLARGINE
     Dosage: 20 IU, QD
     Dates: start: 20180618, end: 20191124
  20. NOVORAPID [Concomitant]
     Active Substance: INSULIN ASPART
     Dosage: 28 IU/DAY
     Dates: start: 20160730, end: 20160806
  21. NOVORAPID [Concomitant]
     Active Substance: INSULIN ASPART
     Dosage: 20 IU/DAY
     Dates: start: 20160808, end: 20160808
  22. DEBERZA [Concomitant]
     Active Substance: TOFOGLIFLOZIN
     Indication: PRODUCT USED FOR UNKNOWN INDICATION
     Dosage: 20 MG/DAY
     Route: 048
     Dates: start: 20161226, end: 20200105
  23. AIMIX [Concomitant]
     Active Substance: AMLODIPINE BESYLATE\IRBESARTAN
     Indication: HYPERTENSION
     Dosage: 1 DOSAGE FORM, QD
     Route: 048
     Dates: start: 20161024, end: 20180121
  24. UNASYN [AMPICILLIN SODIUM;SULBACTAM SODIUM] [Concomitant]
     Indication: CELLULITIS
     Dosage: UNK
     Dates: start: 20160725, end: 20160807
  25. GLUBES [Concomitant]
     Active Substance: MITIGLINIDE CALCIUM HYDRATE\VOGLIBOSE
     Indication: PRODUCT USED FOR UNKNOWN INDICATION
     Dosage: 2 DOSAGE/FORM/DAY
     Route: 048
     Dates: start: 20170925, end: 20190721
  26. MIRCERA [Concomitant]
     Active Substance: METHOXY POLYETHYLENE GLYCOL-EPOETIN BETA
     Indication: NEPHROGENIC ANAEMIA
     Dosage: 50 MCG, QD
     Dates: start: 20180723, end: 20180723
  27. AIMIX [Concomitant]
     Active Substance: AMLODIPINE BESYLATE\IRBESARTAN
     Dosage: 1 DOSAGE FORM, QD
     Route: 048
     Dates: start: 20180122, end: 20200105
  28. NOVORAPID [Concomitant]
     Active Substance: INSULIN ASPART
     Indication: PRODUCT USED FOR UNKNOWN INDICATION
     Dosage: 22 IU/DAY
     Dates: start: 20160726, end: 20160729
  29. NOVORAPID [Concomitant]
     Active Substance: INSULIN ASPART
     Dosage: 24 IU/DAY
     Dates: start: 20160807, end: 20160807
  30. METGLUCO [Concomitant]
     Active Substance: METFORMIN HYDROCHLORIDE
     Dosage: 1500 MG/DAY
     Dates: start: 20160810, end: 20180520
  31. AZOSEMIDE [Concomitant]
     Active Substance: AZOSEMIDE
     Indication: NEPHROPATHY
     Dosage: 30 MG/DAY
     Route: 048
     Dates: start: 20161128, end: 20180422
  32. UNASYN                             /00903602/ [Concomitant]
     Active Substance: SULTAMICILLIN TOSYLATE
     Indication: CELLULITIS
     Dosage: UNK
     Dates: start: 20160808, end: 20160828

REACTIONS (5)
  - Cellulitis [Recovering/Resolving]
  - Hypertension [Recovering/Resolving]
  - Nephropathy [Recovered/Resolved with Sequelae]
  - Nephrogenic anaemia [Recovering/Resolving]
  - Gastrooesophageal reflux disease [Recovered/Resolved]

NARRATIVE: CASE EVENT DATE: 20151228
